FAERS Safety Report 6227611-5 (Version None)
Quarter: 2009Q2

REPORT INFORMATION
  Report Type: 
  Country: None (occurrence: None)
  Receive Date: 20090612
  Receipt Date: 20090529
  Transmission Date: 20091009
  Serious: Yes (Other)
  Sender: FDA-Public Use
  Company Number: PHHY2009GR21114

PATIENT
  Age: 50 Year
  Sex: Female

DRUGS (8)
  1. EXFORGE [Suspect]
     Indication: HYPERTENSION
     Dosage: 5/160 MG DAILY
  2. LOBIVON [Concomitant]
  3. FLUDEX [Concomitant]
  4. OMACOR [Concomitant]
  5. LEPUR [Concomitant]
  6. GLUCOPHAGE [Concomitant]
  7. THYROHORMONE [Concomitant]
  8. NEXIUM [Concomitant]

REACTIONS (3)
  - INFLAMMATION [None]
  - LOCALISED OEDEMA [None]
  - NEOPLASM [None]
